FAERS Safety Report 4867256-2 (Version None)
Quarter: 2005Q4

REPORT INFORMATION
  Report Type: 
  Country: None (occurrence: None)
  Receive Date: 20051228
  Receipt Date: 20051221
  Transmission Date: 20060501
  Serious: Yes (Other)
  Sender: FDA-Public Use
  Company Number: US-JNJFOC-20051204918

PATIENT
  Age: 44 Year
  Sex: Male

DRUGS (1)
  1. FENTANYL [Suspect]
     Route: 048

REACTIONS (2)
  - COMA [None]
  - DRUG INEFFECTIVE [None]
